FAERS Safety Report 5664002-X (Version None)
Quarter: 2008Q1

REPORT INFORMATION
  Report Type: 
  Country: None (occurrence: None)
  Receive Date: 20080314
  Receipt Date: 20080222
  Transmission Date: 20080703
  Serious: Yes (Hospitalization)
  Sender: FDA-Public Use
  Company Number: FR-BAYER-200710306BFR

PATIENT
  Age: 65 Year
  Sex: Male

DRUGS (4)
  1. IZILOX [Suspect]
     Indication: TUBERCULOSIS
     Route: 048
     Dates: start: 20060901, end: 20070601
  2. ZECLAR [Suspect]
     Indication: TUBERCULOSIS
     Route: 048
     Dates: start: 20060901, end: 20070701
  3. MYAMBUTOL [Suspect]
     Indication: TUBERCULOSIS
     Route: 048
     Dates: start: 20060901, end: 20070601
  4. OMEPRAZOLE [Suspect]
     Indication: DRUG USE FOR UNKNOWN INDICATION
     Route: 048

REACTIONS (1)
  - DERMATITIS PSORIASIFORM [None]
